FAERS Safety Report 7890107-9 (Version None)
Quarter: 2011Q4

REPORT INFORMATION
  Report Type: 
  Country: None (occurrence: None)
  Receive Date: 20111103
  Receipt Date: 20111026
  Transmission Date: 20120403
  Serious: Yes (Life-Threatening, Hospitalization)
  Sender: FDA-Public Use
  Company Number: DE-CELGENEUS-062-C5013-10091500

PATIENT
  Age: 69 Year
  Sex: Male
  Weight: 98 kg

DRUGS (22)
  1. MORPHINHEMISULFAT [Concomitant]
     Route: 048
     Dates: start: 20100804, end: 20100822
  2. PAMIDRONATE DISODIUM [Concomitant]
     Indication: PROPHYLAXIS
     Dosage: 3 MILLIGRAM
     Route: 041
     Dates: start: 20100629
  3. MOVIPREP [Concomitant]
     Indication: CONSTIPATION
     Route: 048
     Dates: start: 20100601
  4. LENALIDOMIDE [Suspect]
     Dosage: 25 MILLIGRAM
     Route: 048
     Dates: start: 20100830, end: 20100915
  5. DEXAMETHASONE [Suspect]
     Route: 065
     Dates: start: 20101220, end: 20110117
  6. LENALIDOMIDE [Suspect]
     Dosage: 25 MILLIGRAM
     Route: 048
     Dates: start: 20101122
  7. DEXAMETHASONE [Suspect]
     Route: 065
     Dates: start: 20110228
  8. DEXAMETHASONE [Suspect]
     Indication: MULTIPLE MYELOMA
     Dosage: 40 MILLIGRAM
     Route: 065
     Dates: start: 20100802
  9. PANTOPRAZOLE [Concomitant]
     Indication: GASTRITIS PROPHYLAXIS
     Dosage: 20 MILLIGRAM
     Route: 048
     Dates: start: 20100601
  10. ROSICED [Concomitant]
     Route: 061
     Dates: start: 20100830
  11. LENALIDOMIDE [Suspect]
     Indication: MULTIPLE MYELOMA
     Dosage: 25 MILLIGRAM
     Route: 048
     Dates: start: 20100802
  12. MORPHINHEMISULFAT [Concomitant]
     Dosage: 20 MILLIGRAM
     Route: 048
     Dates: start: 20100802, end: 20100803
  13. LENALIDOMIDE [Suspect]
     Dosage: 25 MILLIGRAM
     Route: 048
     Dates: start: 20101220, end: 20110117
  14. LENALIDOMIDE [Suspect]
     Dosage: 25 MILLIGRAM
     Route: 048
     Dates: start: 20110228
  15. DEXAMETHASONE [Suspect]
     Dosage: 40 MILLIGRAM
     Route: 065
     Dates: start: 20100830, end: 20100915
  16. ENOXAPRIN-NATRIUM [Concomitant]
     Indication: THROMBOSIS PROPHYLAXIS
     Dosage: 160 MILLIGRAM
     Route: 058
     Dates: start: 20100809
  17. MARCUMAR [Concomitant]
     Route: 048
  18. MORPHINHEMISULFAT [Concomitant]
     Indication: BACK PAIN
     Dosage: 40 MILLIGRAM
     Route: 048
     Dates: start: 20100628, end: 20100801
  19. MORPHINHEMISULFAT [Concomitant]
     Dosage: 40 MILLIGRAM
     Route: 048
     Dates: start: 20100823
  20. METOPROLOL TARTRATE [Concomitant]
     Indication: HYPERTENSION
     Dosage: 47.5 MILLIGRAM
     Route: 048
     Dates: start: 20100201
  21. FOLSAN [Concomitant]
     Indication: FOLATE DEFICIENCY
     Dosage: 8/10MG
     Route: 048
     Dates: start: 20100601
  22. ENOXAPARIN SODIUM [Concomitant]
     Indication: ANTICOAGULANT THERAPY
     Route: 065

REACTIONS (2)
  - INFECTIOUS PERITONITIS [None]
  - DIVERTICULAR PERFORATION [None]
